FAERS Safety Report 23126925 (Version 2)
Quarter: 2024Q3

REPORT INFORMATION
  Report Type: Report from Study
  Country: BR (occurrence: BR)
  Receive Date: 20231030
  Receipt Date: 20240911
  Transmission Date: 20241017
  Serious: Yes (Hospitalization, Other)
  Sender: ELI LILLY AND CO
  Company Number: BR-ELI_LILLY_AND_COMPANY-BR202309007373

PATIENT
  Age: 73 Year
  Sex: Female

DRUGS (1)
  1. FORTEO [Suspect]
     Active Substance: TERIPARATIDE
     Indication: Osteoporosis
     Dosage: 20 UG, UNKNOWN
     Route: 058
     Dates: start: 20221228, end: 202307

REACTIONS (7)
  - Coma [Recovered/Resolved]
  - Cerebrovascular accident [Unknown]
  - Ruptured cerebral aneurysm [Unknown]
  - Neurogenic bladder [Unknown]
  - Paralysis [Unknown]
  - Nephrolithiasis [Unknown]
  - Diplopia [Recovering/Resolving]
